FAERS Safety Report 5325190-8 (Version None)
Quarter: 2007Q2

REPORT INFORMATION
  Report Type: 
  Country: None (occurrence: None)
  Receive Date: 20070515
  Receipt Date: 20070507
  Transmission Date: 20071010
  Serious: Yes (Hospitalization)
  Sender: FDA-Public Use
  Company Number: B0470400A

PATIENT
  Age: 77 Year
  Sex: Female

DRUGS (6)
  1. AUGMENTIN '125' [Suspect]
     Indication: URINARY TRACT INFECTION
     Dosage: 1G SEE DOSAGE TEXT
     Route: 048
     Dates: start: 20070410, end: 20070414
  2. PRESTARIUM [Concomitant]
  3. INSULATARD [Concomitant]
  4. METFORMINI HYDROCHLORIDUM [Concomitant]
  5. ANOPYRIN [Concomitant]
  6. VASOCARDIN [Concomitant]

REACTIONS (2)
  - DERMATITIS ALLERGIC [None]
  - DRUG ERUPTION [None]
